FAERS Safety Report 6860422-6 (Version None)
Quarter: 2010Q3

REPORT INFORMATION
  Report Type: 
  Country: None (occurrence: None)
  Receive Date: 20100720
  Receipt Date: 20100705
  Transmission Date: 20110219
  Serious: Yes (Hospitalization)
  Sender: FDA-Public Use
  Company Number: IT-JNJFOC-20100704746

PATIENT
  Sex: Female

DRUGS (3)
  1. KOLIBRI [Suspect]
     Indication: PROCEDURAL PAIN
     Route: 048
  2. ZOLPIDEM [Concomitant]
     Route: 065
  3. SOTALEX [Concomitant]
     Route: 065

REACTIONS (2)
  - BLOOD GLUCOSE ABNORMAL [None]
  - SOPOR [None]
